FAERS Safety Report 10297901 (Version 2)
Quarter: 2014Q3

REPORT INFORMATION
  Report Type: Spontaneous
  Country: FR (occurrence: FR)
  Receive Date: 20140711
  Receipt Date: 20140715
  Transmission Date: 20150326
  Serious: Yes (Hospitalization, Other)
  Sender: FDA-Public Use
  Company Number: FR-PFIZER INC-2014190262

PATIENT
  Sex: Male
  Weight: .95 kg

DRUGS (2)
  1. ZOLOFT [Suspect]
     Active Substance: SERTRALINE HYDROCHLORIDE
     Indication: ANXIETY DISORDER
     Dosage: UNK
     Route: 064
     Dates: start: 20130710
  2. ZOLOFT [Suspect]
     Active Substance: SERTRALINE HYDROCHLORIDE
     Indication: PANIC ATTACK

REACTIONS (12)
  - Inguinal hernia [Unknown]
  - Patent ductus arteriosus [Unknown]
  - Maternal exposure during pregnancy [Unknown]
  - Premature baby [Unknown]
  - Neonatal respiratory distress syndrome [Unknown]
  - Apnoea neonatal [Unknown]
  - Bronchopulmonary dysplasia [Unknown]
  - Tracheitis [Unknown]
  - Jaundice [Unknown]
  - Abdominal distension [Unknown]
  - Necrotising enterocolitis neonatal [Recovering/Resolving]
  - Growth retardation [Recovered/Resolved]

NARRATIVE: CASE EVENT DATE: 2014
